FAERS Safety Report 16852581 (Version 1)
Quarter: 2019Q3

REPORT INFORMATION
  Report Type: Spontaneous
  Country: US (occurrence: US)
  Receive Date: 20190925
  Receipt Date: 20190925
  Transmission Date: 20191005
  Serious: No
  Sender: FDA-Public Use
  Company Number: US-SA-2019SA266332

PATIENT
  Age: 62 Year
  Sex: Female

DRUGS (13)
  1. ASPARTAME [Suspect]
     Active Substance: ASPARTAME
     Dosage: UNK UNK, UNK
  2. FORMOTEROL [Suspect]
     Active Substance: FORMOTEROL
     Dosage: UNK, UNK
  3. ERYTHROMYCIN. [Suspect]
     Active Substance: ERYTHROMYCIN
     Dosage: UNK UNK, UNK
  4. PLAVIX [Suspect]
     Active Substance: CLOPIDOGREL BISULFATE
     Dosage: UNK UNK, UNK
  5. ROSUVASTATIN CALCIUM. [Suspect]
     Active Substance: ROSUVASTATIN CALCIUM
     Dosage: UNK UNK, UNK
  6. EFORMOTEROL [Suspect]
     Active Substance: FORMOTEROL
     Dosage: UNK, UNK
  7. VENLAFAXINE HYDROCHLORIDE. [Suspect]
     Active Substance: VENLAFAXINE HYDROCHLORIDE
     Dosage: UNK UNK, UNK
  8. ATORVASTATIN CALCIUM. [Suspect]
     Active Substance: ATORVASTATIN CALCIUM
     Dosage: UNK UNK, UNK
  9. ACETYLSALICYLIC ACID [Suspect]
     Active Substance: ASPIRIN
     Dosage: UNK UNK, UNK
  10. FORADIL [Suspect]
     Active Substance: FORMOTEROL FUMARATE
     Dosage: UNK UNK, UNK
     Route: 055
  11. ALTACE [Suspect]
     Active Substance: RAMIPRIL
     Dosage: UNK UNK, UNK
  12. ALLEGRA [Suspect]
     Active Substance: FEXOFENADINE HYDROCHLORIDE
     Dosage: UNK UNK, UNK
  13. FEXOFENADINE HYDROCHLORIDE. [Suspect]
     Active Substance: FEXOFENADINE HYDROCHLORIDE
     Dosage: UNK UNK, UNK

REACTIONS (1)
  - Drug hypersensitivity [Unknown]
